FAERS Safety Report 25779219 (Version 1)
Quarter: 2025Q3

REPORT INFORMATION
  Report Type: Report from Study
  Country: CA (occurrence: CA)
  Receive Date: 20250909
  Receipt Date: 20250909
  Transmission Date: 20251021
  Serious: Yes (Death, Hospitalization, Other)
  Sender: GLAXOSMITHKLINE
  Company Number: CA-GSK-CA2025050389

PATIENT
  Age: 72 Year
  Sex: Male

DRUGS (1)
  1. MOMELOTINIB [Suspect]
     Active Substance: MOMELOTINIB
     Indication: Primary myelofibrosis
     Dosage: 200 MG, QD

REACTIONS (4)
  - Death [Fatal]
  - Salmonellosis [Unknown]
  - Pneumonia [Unknown]
  - Confusional state [Unknown]

NARRATIVE: CASE EVENT DATE: 20250819
